FAERS Safety Report 18896129 (Version 1)
Quarter: 2021Q1

REPORT INFORMATION
  Report Type: Spontaneous
  Country: US (occurrence: US)
  Receive Date: 20210215
  Receipt Date: 20210215
  Transmission Date: 20210420
  Serious: No
  Sender: FDA-Public Use
  Company Number: US-LUNDBECK-DKLU3026184

PATIENT

DRUGS (1)
  1. VYEPTI [Suspect]
     Active Substance: EPTINEZUMAB-JJMR
     Indication: PRODUCT USED FOR UNKNOWN INDICATION
     Route: 041
     Dates: start: 20201217

REACTIONS (3)
  - Infusion site swelling [Unknown]
  - Rash [Not Recovered/Not Resolved]
  - Infusion site pain [Unknown]

NARRATIVE: CASE EVENT DATE: 20201217
